FAERS Safety Report 15456635 (Version 2)
Quarter: 2019Q2

REPORT INFORMATION
  Report Type: Spontaneous
  Country: IT (occurrence: JP)
  Receive Date: 20181002
  Receipt Date: 20190618
  Transmission Date: 20190711
  Serious: No
  Sender: FDA-Public Use
  Company Number: IT-LEADIANT BIOSCIENCES INC-2018STPI000606

PATIENT
  Sex: Male

DRUGS (2)
  1. POLAPREZINC [Concomitant]
     Active Substance: POLAPREZINC
  2. CARNITOR SF [Suspect]
     Active Substance: LEVOCARNITINE
     Indication: CARNITINE DEFICIENCY
     Dosage: UNK UNK, QD
     Route: 048

REACTIONS (2)
  - Pulmonary oedema [Recovered/Resolved]
  - Generalised oedema [Recovered/Resolved]
